FAERS Safety Report 15384714 (Version 1)
Quarter: 2018Q3

REPORT INFORMATION
  Report Type: Spontaneous
  Country: PT (occurrence: PT)
  Receive Date: 20180914
  Receipt Date: 20180914
  Transmission Date: 20181010
  Serious: Yes (Hospitalization, Other)
  Sender: FDA-Public Use
  Company Number: PT-AUROBINDO-AUR-APL-2018-045660

PATIENT
  Age: 25 Year
  Sex: Male
  Weight: 60 kg

DRUGS (5)
  1. INCB039110 [Concomitant]
     Active Substance: INVESTIGATIONAL PRODUCT
     Indication: ACUTE GRAFT VERSUS HOST DISEASE
     Dosage: 200 MILLIGRAM DAILY
     Route: 048
     Dates: start: 20180515
  2. TACROLIMUS. [Suspect]
     Active Substance: TACROLIMUS
     Indication: PRODUCT USED FOR UNKNOWN INDICATION
     Dosage: UNK
     Route: 065
     Dates: start: 20180412
  3. INCB039110 [Concomitant]
     Active Substance: INVESTIGATIONAL PRODUCT
     Dosage: 100 MILLIGRAM DAILY
     Route: 048
     Dates: start: 20180611, end: 20180615
  4. PREDNISOLONE. [Suspect]
     Active Substance: PREDNISOLONE
     Indication: PRODUCT USED FOR UNKNOWN INDICATION
     Dosage: 140 MG/DAY INITIAL DOSE, WITH FURTHER TAPERING TO 120MG/DAY
     Route: 048
     Dates: start: 20180514
  5. VALGANCICLOVIR. [Suspect]
     Active Substance: VALGANCICLOVIR
     Indication: PRODUCT USED FOR UNKNOWN INDICATION
     Dosage: UNK
     Route: 065
     Dates: start: 20180522

REACTIONS (3)
  - Febrile neutropenia [Recovered/Resolved]
  - Abscess [Recovered/Resolved]
  - Thrombocytopenia [Unknown]

NARRATIVE: CASE EVENT DATE: 20180615
